FAERS Safety Report 7591076-1 (Version None)
Quarter: 2011Q3

REPORT INFORMATION
  Report Type: 
  Country: None (occurrence: None)
  Receive Date: 20110705
  Receipt Date: 20110630
  Transmission Date: 20111222
  Serious: Yes (Death)
  Sender: FDA-Public Use
  Company Number: US-RB-029589-11

PATIENT
  Sex: Male
  Weight: 14 kg

DRUGS (3)
  1. COUGH SYRUP [Concomitant]
     Dosage: DOSING DETAILS UNKNOWN
     Route: 048
  2. SUBOXONE [Suspect]
     Indication: PRODUCT USED FOR UNKNOWN INDICATION
     Dosage: DOSING DETAILS UNKNOWN
     Route: 048
     Dates: start: 20090921, end: 20090921
  3. ALBUTEROL SULFATE AUTOHALER [Concomitant]
     Indication: PRODUCT USED FOR UNKNOWN INDICATION
     Dosage: DOSING DETAILS UNKNOWN
     Route: 065

REACTIONS (4)
  - LARYNGITIS [None]
  - PYREXIA [None]
  - BRONCHOPNEUMONIA [None]
  - TOXICITY TO VARIOUS AGENTS [None]
